FAERS Safety Report 19504934 (Version 1)
Quarter: 2021Q3

REPORT INFORMATION
  Report Type: Spontaneous
  Country: US (occurrence: US)
  Receive Date: 20210707
  Receipt Date: 20210707
  Transmission Date: 20211014
  Serious: No
  Sender: FDA-Public Use
  Company Number: US-SA-2021SA221617

PATIENT
  Age: 37 Year
  Sex: Male

DRUGS (10)
  1. ADVAIR HFA [Concomitant]
     Active Substance: FLUTICASONE PROPIONATE\SALMETEROL XINAFOATE
  2. VENTOLIN [Concomitant]
     Active Substance: ALBUTEROL SULFATE
  3. DUPIXENT [Suspect]
     Active Substance: DUPILUMAB
     Indication: ASTHMA
     Dosage: 600 MG, 1X
     Route: 058
     Dates: start: 202106, end: 202106
  4. DICYCLOMINE [DICYCLOVERINE HYDROCHLORIDE] [Concomitant]
     Active Substance: DICYCLOMINE HYDROCHLORIDE
  5. NAPROXEN. [Concomitant]
     Active Substance: NAPROXEN
  6. PREDNISONE. [Concomitant]
     Active Substance: PREDNISONE
  7. IPRATROPIUM [Concomitant]
     Active Substance: IPRATROPIUM
  8. MONTELUKAST [Concomitant]
     Active Substance: MONTELUKAST SODIUM
  9. DUPIXENT [Suspect]
     Active Substance: DUPILUMAB
     Dosage: 300 MG, QOW
     Route: 058
     Dates: start: 202106
  10. AMLODIPINE [Concomitant]
     Active Substance: AMLODIPINE BESYLATE

REACTIONS (2)
  - Therapeutic response shortened [Unknown]
  - Product use issue [Unknown]
